FAERS Safety Report 11610126 (Version 6)
Quarter: 2016Q4

REPORT INFORMATION
  Report Type: Report from Study
  Country: MX (occurrence: MX)
  Receive Date: 20151008
  Receipt Date: 20161110
  Transmission Date: 20170206
  Serious: Yes (Hospitalization)
  Sender: FDA-Public Use
  Company Number: MX-ROCHE-1643061

PATIENT
  Age: 58 Year
  Sex: Male
  Weight: 53 kg

DRUGS (8)
  1. DEXAMETHASONE. [Concomitant]
     Active Substance: DEXAMETHASONE
     Route: 065
     Dates: start: 20150914, end: 20150914
  2. CLOROTRIMETON [Concomitant]
     Route: 065
     Dates: start: 20150914, end: 20150914
  3. ONDANSETRON [Concomitant]
     Active Substance: ONDANSETRON
     Route: 065
     Dates: start: 20150914, end: 20150914
  4. APREPITANT. [Concomitant]
     Active Substance: APREPITANT
     Route: 065
     Dates: start: 20150914, end: 20150914
  5. CISPLATIN. [Suspect]
     Active Substance: CISPLATIN
     Indication: GASTROOESOPHAGEAL CANCER
     Dosage: LAST DATE PRIOR TO SAE: 19/SEP/2015
     Route: 042
     Dates: start: 20150824
  6. MANITOL [Concomitant]
     Route: 065
     Dates: start: 20150914, end: 20150914
  7. RANITIDINE. [Concomitant]
     Active Substance: RANITIDINE
     Route: 065
     Dates: start: 20150914, end: 20150914
  8. CAPECITABINE. [Suspect]
     Active Substance: CAPECITABINE
     Indication: GASTROOESOPHAGEAL CANCER
     Dosage: LAST DATE PRIOR TO SAE: 19/SEP/2015
     Route: 048
     Dates: start: 20150824, end: 20150919

REACTIONS (1)
  - Abdominal pain [Not Recovered/Not Resolved]

NARRATIVE: CASE EVENT DATE: 20150919
